FAERS Safety Report 9664586 (Version 1)
Quarter: 2013Q4

REPORT INFORMATION
  Report Type: Spontaneous
  Country: US (occurrence: US)
  Receive Date: 20131101
  Receipt Date: 20131101
  Transmission Date: 20140711
  Serious: Yes (Other)
  Sender: FDA-Public Use
  Company Number: US-TEVA-441170USA

PATIENT
  Age: 36 Year
  Sex: Female

DRUGS (1)
  1. CLARAVIS [Suspect]
     Dates: start: 20130207, end: 20130716

REACTIONS (2)
  - Hysterectomy [Unknown]
  - Acne [Unknown]
